FAERS Safety Report 8538385-7 (Version None)
Quarter: 2012Q3

REPORT INFORMATION
  Report Type: 
  Country: None (occurrence: None)
  Receive Date: 20120726
  Receipt Date: 20120724
  Transmission Date: 20120928
  Serious: No
  Sender: FDA-Public Use
  Company Number: US-PFIZER INC-2012179166

PATIENT
  Sex: Female
  Weight: 55.329 kg

DRUGS (4)
  1. LYRICA [Suspect]
     Indication: HERPES ZOSTER
     Dosage: 100 MG, 2X/DAY
     Route: 048
     Dates: start: 20120723, end: 20120723
  2. NIFEDIPINE [Concomitant]
     Indication: RAYNAUD'S PHENOMENON
     Dosage: UNK
  3. LISINOPRIL [Concomitant]
     Indication: JOINT SWELLING
     Dosage: UNK, 1X/DAY
  4. PREDNISONE [Concomitant]
     Dosage: UNK

REACTIONS (3)
  - EUPHORIC MOOD [None]
  - VISION BLURRED [None]
  - DIZZINESS [None]
